FAERS Safety Report 9330738 (Version 2)
Quarter: 2013Q3

REPORT INFORMATION
  Report Type: Spontaneous
  Country: PE (occurrence: PE)
  Receive Date: 20130605
  Receipt Date: 20130708
  Transmission Date: 20140515
  Serious: Yes (Other)
  Sender: FDA-Public Use
  Company Number: PE-GENZYME-FABR-1003291

PATIENT
  Age: 52 Year
  Sex: Male
  Weight: 70 kg

DRUGS (2)
  1. FABRAZYME [Suspect]
     Indication: FABRY^S DISEASE
     Dosage: 1 MG/KG, Q2W
     Route: 042
     Dates: start: 201110
  2. AMLODIPIN [Concomitant]
     Indication: HYPERTENSION
     Dosage: 30 MG, QD
     Route: 065
     Dates: start: 201211

REACTIONS (4)
  - Blood culture positive [Unknown]
  - Infusion site thrombosis [Unknown]
  - Malaise [Not Recovered/Not Resolved]
  - Chills [Not Recovered/Not Resolved]
